FAERS Safety Report 22064432 (Version 3)
Quarter: 2024Q4

REPORT INFORMATION
  Report Type: Spontaneous
  Country: US (occurrence: US)
  Receive Date: 20230306
  Receipt Date: 20241002
  Transmission Date: 20250115
  Serious: Yes (Other)
  Sender: PFIZER
  Company Number: US-PFIZER INC-PV202300041681

PATIENT
  Age: 68 Year
  Sex: Female

DRUGS (3)
  1. XELJANZ [Suspect]
     Active Substance: TOFACITINIB CITRATE
     Indication: Rheumatoid arthritis
     Dosage: UNK
  2. XELJANZ [Suspect]
     Active Substance: TOFACITINIB CITRATE
     Dosage: 5 MG, 2X/DAY
  3. XELJANZ [Suspect]
     Active Substance: TOFACITINIB CITRATE
     Dosage: 5 MG, 1X/DAY

REACTIONS (10)
  - Haemorrhage [Unknown]
  - Traumatic haemorrhage [Unknown]
  - Neuropathy peripheral [Unknown]
  - Demyelination [Unknown]
  - Product dose omission in error [Unknown]
  - Skin laceration [Unknown]
  - Urinary tract infection [Unknown]
  - Memory impairment [Unknown]
  - COVID-19 [Unknown]
  - Impaired healing [Unknown]
